FAERS Safety Report 4684149-4 (Version None)
Quarter: 2005Q2

REPORT INFORMATION
  Report Type: 
  Country: None (occurrence: None)
  Receive Date: 20050607
  Receipt Date: 20050602
  Transmission Date: 20051028
  Serious: Yes (Disabling)
  Sender: FDA-Public Use
  Company Number: US-GLAXOSMITHKLINE-A0560956A

PATIENT
  Sex: Female

DRUGS (2)
  1. WELLBUTRIN [Suspect]
     Indication: DEPRESSION
     Dosage: 300MG PER DAY
     Route: 048
  2. ALCOHOL [Concomitant]

REACTIONS (2)
  - CONVULSION [None]
  - HEAD INJURY [None]
